FAERS Safety Report 7069638-X (Version None)
Quarter: 2010Q4

REPORT INFORMATION
  Report Type: 
  Country: None (occurrence: None)
  Receive Date: 20101028
  Receipt Date: 20100402
  Transmission Date: 20110411
  Serious: No
  Sender: FDA-Public Use
  Company Number: US-WYE-H14396610

PATIENT

DRUGS (4)
  1. PROTONIX [Suspect]
     Dosage: 40 MG, UNSPECIFIED FREQUENCY
     Route: 042
  2. PLAVIX [Interacting]
     Route: 048
     Dates: start: 20100130, end: 20100130
  3. PLAVIX [Interacting]
     Route: 048
     Dates: start: 20100131, end: 20100131
  4. PLAVIX [Interacting]
     Route: 048
     Dates: start: 20100201

REACTIONS (2)
  - DRUG INTERACTION [None]
  - PLATELET AGGREGATION ABNORMAL [None]
